FAERS Safety Report 23683232 (Version 1)
Quarter: 2024Q1

REPORT INFORMATION
  Report Type: Spontaneous
  Country: US (occurrence: US)
  Receive Date: 20240328
  Receipt Date: 20240328
  Transmission Date: 20240409
  Serious: Yes (Other)
  Sender: FDA-Public Use
  Company Number: US-Blueprint Medicines Corporation-2927

PATIENT
  Sex: Female

DRUGS (2)
  1. AYVAKIT [Suspect]
     Active Substance: AVAPRITINIB
     Indication: Advanced systemic mastocytosis
     Route: 048
  2. AYVAKIT [Suspect]
     Active Substance: AVAPRITINIB
     Indication: Advanced systemic mastocytosis

REACTIONS (7)
  - Pneumonia [Unknown]
  - Insomnia [Unknown]
  - Sleep disorder [Unknown]
  - Hair colour changes [Unknown]
  - Periorbital swelling [Not Recovered/Not Resolved]
  - Nausea [Unknown]
  - Product dose omission issue [Unknown]
